FAERS Safety Report 4417130-0 (Version None)
Quarter: 2004Q2

REPORT INFORMATION
  Report Type: 
  Country: None (occurrence: None)
  Receive Date: 20040629
  Receipt Date: 20030904
  Transmission Date: 20050107
  Serious: Yes (Hospitalization)
  Sender: FDA-Public Use
  Company Number: 2003UW11219

PATIENT
  Sex: Female

DRUGS (1)
  1. ATACAND HCT [Suspect]
     Dosage: 32 + 12.5 MG

REACTIONS (1)
  - ANGIONEUROTIC OEDEMA [None]
